FAERS Safety Report 9814711 (Version 1)
Quarter: 2014Q1

REPORT INFORMATION
  Report Type: Spontaneous
  Country: US (occurrence: US)
  Receive Date: 20140113
  Receipt Date: 20140113
  Transmission Date: 20141002
  Serious: No
  Sender: FDA-Public Use
  Company Number: US-SANOFI-AVENTIS-2013SA007255

PATIENT
  Age: 59 Year
  Sex: Female
  Weight: 63 kg

DRUGS (7)
  1. TAXOTERE [Suspect]
     Indication: BREAST CANCER STAGE I
     Dates: start: 201301
  2. TAXOTERE [Suspect]
     Indication: BREAST CANCER STAGE I
     Dates: start: 201301
  3. TAXOTERE [Suspect]
     Indication: BREAST CANCER STAGE I
     Dates: start: 20130103, end: 20130128
  4. TAXOTERE [Suspect]
     Indication: BREAST CANCER STAGE I
     Dates: start: 20130103, end: 20130128
  5. TAXOTERE [Suspect]
     Indication: BREAST CANCER STAGE I
     Dates: start: 20130128
  6. TAXOTERE [Suspect]
     Indication: BREAST CANCER STAGE I
     Dates: start: 20130128
  7. CYCLOPHOSPHAMIDE [Concomitant]
     Dates: start: 20130103

REACTIONS (7)
  - Headache [Recovered/Resolved]
  - Oxygen saturation decreased [Recovered/Resolved]
  - Feeling hot [Recovered/Resolved]
  - Blood pressure increased [Recovered/Resolved]
  - Erythema [Recovered/Resolved]
  - Back pain [Recovered/Resolved]
  - Dyspnoea [Recovered/Resolved]
